FAERS Safety Report 14018833 (Version 2)
Quarter: 2017Q4

REPORT INFORMATION
  Report Type: Spontaneous
  Country: US (occurrence: US)
  Receive Date: 20170928
  Receipt Date: 20171011
  Transmission Date: 20180321
  Serious: No
  Sender: FDA-Public Use
  Company Number: US-PFIZER INC-2017417698

PATIENT
  Age: 59 Year
  Sex: Female
  Weight: 59.41 kg

DRUGS (7)
  1. EXEMESTANE. [Concomitant]
     Active Substance: EXEMESTANE
     Indication: BREAST CANCER METASTATIC
     Dosage: 25 MG, DAILY, (EVERY DAY )
  2. VITAMIN E [Concomitant]
     Active Substance: .ALPHA.-TOCOPHEROL
     Dosage: 1000 IU, 1X/DAY
  3. PENTOXIFYLLIN [Concomitant]
     Active Substance: PENTOXIFYLLINE
     Indication: DENTAL DISORDER PROPHYLAXIS
     Dosage: 400 MG, 2X/DAY
  4. NATURE MADE CALCIUM WITH VITAMIN D [Concomitant]
     Dosage: UNK, 2X/DAY  (CALCIUM 500 WITH VITAMIN D 400 IU)
  5. IBRANCE [Suspect]
     Active Substance: PALBOCICLIB
     Indication: BREAST CANCER METASTATIC
     Dosage: 125 MG, CYCLIC, (ONCE A DAY FOR 21 DAYS)
     Dates: start: 20170915, end: 20170926
  6. PERIDEX [Concomitant]
     Active Substance: CHLORHEXIDINE GLUCONATE
     Indication: DENTAL DISORDER PROPHYLAXIS
     Dosage: UNK, 1X/DAY (RINSE ONCE A DAY)
  7. DIAZEPAM. [Concomitant]
     Active Substance: DIAZEPAM
     Indication: ANXIETY
     Dosage: 5 MG, AS NEEDED

REACTIONS (3)
  - Tremor [Unknown]
  - Feeling jittery [Unknown]
  - White blood cell count decreased [Unknown]

NARRATIVE: CASE EVENT DATE: 20171004
